FAERS Safety Report 7806865-5 (Version None)
Quarter: 2011Q4

REPORT INFORMATION
  Report Type: 
  Country: None (occurrence: None)
  Receive Date: 20111011
  Receipt Date: 20111006
  Transmission Date: 20120403
  Serious: Yes (Other)
  Sender: FDA-Public Use
  Company Number: US-AMGEN-USASP2011046155

PATIENT
  Age: 49 Year
  Sex: Female

DRUGS (3)
  1. HUMIRA [Concomitant]
  2. ENBREL [Suspect]
     Indication: PSORIASIS
     Dosage: 50 UNK, 2 TIMES/WK
     Route: 058
     Dates: start: 20110901, end: 20110927
  3. ENBREL [Suspect]
     Dosage: 50 MG, 2 TIMES/WK
     Dates: start: 20110801

REACTIONS (5)
  - NECK PAIN [None]
  - HEADACHE [None]
  - PARAESTHESIA [None]
  - DEPRESSION [None]
  - DIZZINESS [None]
